FAERS Safety Report 7426080-7 (Version None)
Quarter: 2011Q2

REPORT INFORMATION
  Report Type: 
  Country: None (occurrence: None)
  Receive Date: 20110420
  Receipt Date: 20110406
  Transmission Date: 20111010
  Serious: Yes (Other)
  Sender: FDA-Public Use
  Company Number: PHHY2011FR29178

PATIENT
  Age: 75 Year
  Sex: Male

DRUGS (2)
  1. PREVISCAN [Concomitant]
  2. RASILEZ [Suspect]
     Dates: start: 20110301

REACTIONS (1)
  - HEPATIC FUNCTION ABNORMAL [None]
